FAERS Safety Report 13419352 (Version 1)
Quarter: 2017Q2

REPORT INFORMATION
  Report Type: Spontaneous
  Country: US (occurrence: US)
  Receive Date: 20170407
  Receipt Date: 20170407
  Transmission Date: 20170830
  Serious: Yes (Death, Hospitalization, Other)
  Sender: FDA-Public Use
  Company Number: US-APOTEX-2017AP009613

PATIENT
  Sex: Male

DRUGS (1)
  1. FENTANYL. [Suspect]
     Active Substance: FENTANYL
     Indication: PRODUCT USED FOR UNKNOWN INDICATION
     Route: 065

REACTIONS (12)
  - Gastrointestinal haemorrhage [Unknown]
  - Depressed level of consciousness [Unknown]
  - Toxicity to various agents [Unknown]
  - Hypotension [Unknown]
  - Respiratory failure [Unknown]
  - Overdose [Unknown]
  - Acute kidney injury [Unknown]
  - Pulmonary haemorrhage [Unknown]
  - Miosis [Unknown]
  - Respiratory depression [Unknown]
  - Bradycardia [Unknown]
  - Multiple organ dysfunction syndrome [Fatal]
